FAERS Safety Report 6155575-1 (Version None)
Quarter: 2009Q2

REPORT INFORMATION
  Report Type: 
  Country: None (occurrence: None)
  Receive Date: 20090415
  Receipt Date: 20090331
  Transmission Date: 20091009
  Serious: Yes (Hospitalization)
  Sender: FDA-Public Use
  Company Number: DK-BIOGENIDEC-2009BI001658

PATIENT
  Age: 19 Year
  Sex: Female

DRUGS (3)
  1. TYSABRI [Suspect]
     Indication: MULTIPLE SCLEROSIS
     Route: 042
     Dates: start: 20071011, end: 20081216
  2. GABAPENTIN [Concomitant]
     Dates: end: 20080101
  3. IMIPRAMINE [Concomitant]
     Dates: end: 20080101

REACTIONS (3)
  - DRUG INEFFECTIVE [None]
  - HERPES ZOSTER [None]
  - NEUROMYELITIS OPTICA [None]
